FAERS Safety Report 9455586 (Version 4)
Quarter: 2014Q3

REPORT INFORMATION
  Report Type: Spontaneous
  Country: US (occurrence: US)
  Receive Date: 20130813
  Receipt Date: 20140725
  Transmission Date: 20150326
  Serious: Yes (Death, Hospitalization)
  Sender: FDA-Public Use
  Company Number: US-PFIZER INC-2013233314

PATIENT
  Age: 66 Year
  Sex: Female
  Weight: 45.35 kg

DRUGS (13)
  1. LYRICA [Suspect]
     Active Substance: PREGABALIN
     Indication: MULTIPLE SCLEROSIS
     Dosage: 50 MG, DAILY
     Route: 048
     Dates: start: 20120125
  2. IMMUPLEX [Concomitant]
     Dosage: UNK (BY MOUTH/THROAT ROUTE AS NEEDED)
     Route: 048
  3. ACETAMINOPHEN. [Concomitant]
     Active Substance: ACETAMINOPHEN
     Dosage: 650 MG, EVERY 4 HRS(EVERY 4 HOURS AS NEEDED)
     Route: 048
  4. FAMOTIDINE. [Concomitant]
     Active Substance: FAMOTIDINE
     Dosage: 20 MG, 2X/DAY
     Route: 048
  5. FISH OIL [Concomitant]
     Active Substance: FISH OIL
     Dosage: 1000 MG, DAILY
     Route: 048
  6. CALCIUM + VIT D [Concomitant]
     Active Substance: CALCIUM\VITAMIN D
     Dosage: 1 DF, DAILY
     Route: 048
  7. LEVOTHYROXINE [Concomitant]
     Active Substance: LEVOTHYROXINE
     Dosage: 100 UG, DAILY
     Route: 048
  8. FLUOXETINE [Concomitant]
     Active Substance: FLUOXETINE\FLUOXETINE HYDROCHLORIDE
     Dosage: 20 MG, DAILY(1 TAB ODD, 2 TAB EVEN)
     Route: 048
  9. GUAIFENESIN. [Concomitant]
     Active Substance: GUAIFENESIN
     Dosage: 100 MG/5ML PO LIQD,10 ML, EVERY 4 HOURS AS NEEDED
     Route: 048
  10. VITAMIN D3 [Concomitant]
     Active Substance: CHOLECALCIFEROL
     Dosage: 2000 IU, 2X/DAY
     Route: 048
  11. CPAP MASK [Concomitant]
     Dosage: UNK, (AS DIRECTED)
     Route: 048
  12. ASPIRIN. [Concomitant]
     Active Substance: ASPIRIN
     Dosage: 81 MG, DAILY
     Route: 048
  13. COPAXONE [Concomitant]
     Active Substance: GLATIRAMER ACETATE
     Dosage: 20 MG/ML SC KIT, 1 ML, DAILY
     Route: 058

REACTIONS (22)
  - Cerebellar ataxia [Unknown]
  - Blood thyroid stimulating hormone decreased [Unknown]
  - Disease progression [Unknown]
  - Hyporeflexia [Unknown]
  - Red blood cell count decreased [Unknown]
  - Mean cell haemoglobin concentration decreased [Unknown]
  - Liver function test abnormal [Unknown]
  - Blood alkaline phosphatase increased [Unknown]
  - Mitral valve prolapse [Unknown]
  - Liver disorder [Unknown]
  - Pain in extremity [Unknown]
  - Smooth muscle antibody positive [Unknown]
  - Death [Fatal]
  - Muscular weakness [Unknown]
  - Nystagmus [Unknown]
  - Off label use [Fatal]
  - Mood altered [Unknown]
  - White blood cell count decreased [Unknown]
  - Oedema peripheral [Unknown]
  - Sleep disorder [Unknown]
  - Haemoglobin decreased [Unknown]
  - Haematocrit decreased [Unknown]

NARRATIVE: CASE EVENT DATE: 20130124
